FAERS Safety Report 9229326 (Version 1)
Quarter: 2013Q2

REPORT INFORMATION
  Report Type: Spontaneous
  Country: US (occurrence: US)
  Receive Date: 20130412
  Receipt Date: 20130412
  Transmission Date: 20140414
  Serious: No
  Sender: FDA-Public Use
  Company Number: US-ASTELLAS-2012US010709

PATIENT
  Sex: Male

DRUGS (1)
  1. PROGRAF [Suspect]
     Indication: RENAL TRANSPLANT
     Dosage: 1 MG IN THE MORNING AND 2 MG IN THE EVENING
     Dates: start: 20071203

REACTIONS (2)
  - Hypoacusis [Unknown]
  - Nasopharyngitis [Unknown]
